FAERS Safety Report 4690168-4 (Version None)
Quarter: 2005Q2

REPORT INFORMATION
  Report Type: 
  Country: None (occurrence: None)
  Receive Date: 20050613
  Receipt Date: 20050601
  Transmission Date: 20051028
  Serious: Yes (Other)
  Sender: FDA-Public Use
  Company Number: HQWYE285506JUN05

PATIENT
  Sex: Female

DRUGS (1)
  1. PROTONIX [Suspect]
     Dates: start: 20040101

REACTIONS (1)
  - THYROID GLAND CANCER [None]
